FAERS Safety Report 7759949-4 (Version None)
Quarter: 2011Q3

REPORT INFORMATION
  Report Type: 
  Country: None (occurrence: None)
  Receive Date: 20110915
  Receipt Date: 20110905
  Transmission Date: 20111222
  Serious: Yes (Other)
  Sender: FDA-Public Use
  Company Number: B0746513A

PATIENT
  Sex: Female

DRUGS (2)
  1. DACTINOMYCIN [Suspect]
     Indication: MALIGNANT MELANOMA
  2. MELPHALAN HYDROCHLORIDE [Suspect]
     Indication: MALIGNANT MELANOMA
     Dosage: SEE TEXT

REACTIONS (1)
  - NEUTROPENIC SEPSIS [None]
